FAERS Safety Report 16902094 (Version 1)
Quarter: 2019Q4

REPORT INFORMATION
  Report Type: Report from Study
  Country: None (occurrence: ES)
  Receive Date: 20191010
  Receipt Date: 20191010
  Transmission Date: 20200122
  Serious: Yes (Death)
  Sender: FDA-Public Use
  Company Number: ES-ABBVIE-19K-144-2957674-00

PATIENT
  Sex: Male
  Weight: 69 kg

DRUGS (1)
  1. DUODOPA [Suspect]
     Active Substance: CARBIDOPA\LEVODOPA
     Indication: PARKINSON^S DISEASE
     Route: 050
     Dates: start: 20180517

REACTIONS (3)
  - Respiratory tract infection [Fatal]
  - Parkinson^s disease [Fatal]
  - Aspiration [Fatal]
